FAERS Safety Report 7120899-8 (Version None)
Quarter: 2010Q4

REPORT INFORMATION
  Report Type: 
  Country: None (occurrence: None)
  Receive Date: 20101124
  Receipt Date: 20101115
  Transmission Date: 20110411
  Serious: Yes (Disabling)
  Sender: FDA-Public Use
  Company Number: DE-JNJFOC-20101106908

PATIENT
  Sex: Female
  Weight: 46 kg

DRUGS (6)
  1. TAPENTADOL [Suspect]
     Indication: PRODUCT USED FOR UNKNOWN INDICATION
     Route: 048
  2. TAPENTADOL [Suspect]
     Route: 048
  3. OXYGESIC [Suspect]
     Indication: PRODUCT USED FOR UNKNOWN INDICATION
     Route: 048
  4. DIPIDOLOR [Concomitant]
     Indication: DEPENDENCE
     Route: 058
  5. ACTIQ [Concomitant]
  6. DIAZEPAM [Concomitant]
     Indication: MUSCLE SPASMS

REACTIONS (2)
  - DRUG INEFFECTIVE [None]
  - INSOMNIA [None]
